FAERS Safety Report 8531150-6 (Version None)
Quarter: 2012Q3

REPORT INFORMATION
  Report Type: 
  Country: None (occurrence: None)
  Receive Date: 20120723
  Receipt Date: 20120712
  Transmission Date: 20120928
  Serious: Yes (Other)
  Sender: FDA-Public Use
  Company Number: US-ASTRAZENECA-2012SE48210

PATIENT
  Age: 51 Year
  Sex: Female
  Weight: 90.7 kg

DRUGS (3)
  1. SEROQUEL [Suspect]
     Indication: NERVOUS SYSTEM DISORDER
     Route: 048
  2. SEROQUEL [Suspect]
     Route: 048
     Dates: start: 20120501
  3. SEROQUEL [Suspect]
     Route: 048
     Dates: start: 20090101

REACTIONS (7)
  - HYPERTHERMIA MALIGNANT [None]
  - HANGOVER [None]
  - OFF LABEL USE [None]
  - MALAISE [None]
  - MUSCLE SPASMS [None]
  - WEIGHT INCREASED [None]
  - CONVULSION [None]
